FAERS Safety Report 20387499 (Version 1)
Quarter: 2022Q1

REPORT INFORMATION
  Report Type: Spontaneous
  Country: US (occurrence: US)
  Receive Date: 20220127
  Receipt Date: 20220127
  Transmission Date: 20220424
  Serious: No
  Sender: FDA-Public Use
  Company Number: US-ALLERGAN-2133958US

PATIENT
  Sex: Female

DRUGS (5)
  1. BOTOX COSMETIC [Suspect]
     Active Substance: ONABOTULINUMTOXINA
     Indication: Headache
     Dosage: 8 UNK
     Dates: start: 2020
  2. BOTOX COSMETIC [Suspect]
     Active Substance: ONABOTULINUMTOXINA
     Dosage: 30 UNITS, SINGLE
     Dates: start: 2020, end: 2020
  3. BHRT [Concomitant]
  4. ACYCLOVIR [Concomitant]
     Active Substance: ACYCLOVIR
  5. UNSPECIFIED INGREDIENT [Concomitant]
     Active Substance: UNSPECIFIED INGREDIENT

REACTIONS (2)
  - Eye symptom [Unknown]
  - Eyelid ptosis [Unknown]

NARRATIVE: CASE EVENT DATE: 20200101
